FAERS Safety Report 7582276-5 (Version None)
Quarter: 2011Q2

REPORT INFORMATION
  Report Type: 
  Country: None (occurrence: None)
  Receive Date: 20110622
  Receipt Date: 20110607
  Transmission Date: 20111010
  Serious: Yes (Death, Life-Threatening, Other)
  Sender: FDA-Public Use
  Company Number: 2011MA006912

PATIENT
  Age: 33 Year
  Sex: Male

DRUGS (14)
  1. DIAZEPAM [Suspect]
     Indication: OVERDOSE
     Dosage: ; 1X;
  2. DEPROMEL [Concomitant]
  3. DEPAS [Concomitant]
  4. NORTRIPTYLINE HCL [Concomitant]
  5. ROHYPNOL [Concomitant]
  6. TOLEDOMIN [Concomitant]
  7. ANAFRANIL [Concomitant]
  8. SEDIEL [Concomitant]
  9. PZC [Concomitant]
  10. SURMONTIL [Concomitant]
  11. VEGETAMIN-A [Concomitant]
  12. RIZE [Concomitant]
  13. LENDORMIN [Concomitant]
  14. MEILAX [Concomitant]

REACTIONS (11)
  - PULMONARY OEDEMA [None]
  - PULMONARY ALVEOLAR HAEMORRHAGE [None]
  - BODY TEMPERATURE INCREASED [None]
  - HEPATIC NECROSIS [None]
  - HEPATIC STEATOSIS [None]
  - TOXICITY TO VARIOUS AGENTS [None]
  - CARDIO-RESPIRATORY ARREST [None]
  - WOUND [None]
  - HEPATOMEGALY [None]
  - CARDIOMYOPATHY [None]
  - MULTIPLE DRUG OVERDOSE [None]
